FAERS Safety Report 5355203-9 (Version None)
Quarter: 2007Q2

REPORT INFORMATION
  Report Type: 
  Country: None (occurrence: None)
  Receive Date: 20070613
  Receipt Date: 20070604
  Transmission Date: 20071010
  Serious: Yes (Hospitalization)
  Sender: FDA-Public Use
  Company Number: IT-ELI_LILLY_AND_COMPANY-IT200706001652

PATIENT
  Age: 49 Year
  Sex: Male

DRUGS (5)
  1. ALIMTA [Suspect]
     Indication: MESOTHELIOMA MALIGNANT
     Dosage: 1000 MG, OTHER
     Route: 042
     Dates: start: 20070404, end: 20070404
  2. FOLIC ACID [Concomitant]
     Indication: PREMEDICATION
  3. VITAMIN B-12 [Concomitant]
     Indication: PREMEDICATION
  4. CORTICOSTEROIDS [Concomitant]
     Indication: PREMEDICATION
  5. CISPLATIN [Concomitant]
     Indication: MESOTHELIOMA MALIGNANT
     Dosage: 75 MG, OTHER
     Dates: start: 20070404, end: 20070405

REACTIONS (1)
  - MYOCARDIAL INFARCTION [None]
